FAERS Safety Report 14431620 (Version 7)
Quarter: 2020Q3

REPORT INFORMATION
  Report Type: Spontaneous
  Country: IT (occurrence: IT)
  Receive Date: 20180124
  Receipt Date: 20200724
  Transmission Date: 20201102
  Serious: Yes (Life-Threatening, Hospitalization, Other)
  Sender: FDA-Public Use
  Company Number: IT-MYLANLABS-2018M1005180

PATIENT
  Age: 59 Year
  Sex: Female

DRUGS (26)
  1. CALCIUM CARBONATE. [Interacting]
     Active Substance: CALCIUM CARBONATE
     Indication: CHRONIC KIDNEY DISEASE
     Dosage: 3000 MG, DAILY (HIGH DOSES)
  2. CALCITRIOL. [Interacting]
     Active Substance: CALCITRIOL
     Dosage: UNK
     Route: 048
  3. CALCITRIOL. [Interacting]
     Active Substance: CALCITRIOL
     Dosage: UNK
     Route: 048
  4. TORASEMIDE [Suspect]
     Active Substance: TORSEMIDE
     Indication: SEPSIS
     Dosage: UNK
  5. CALCIUM CARBONATE. [Interacting]
     Active Substance: CALCIUM CARBONATE
     Indication: TETANY
  6. FUROSEMIDE. [Suspect]
     Active Substance: FUROSEMIDE
     Indication: SEPSIS
     Dosage: UNK
     Route: 065
  7. HYDROCHLOROTHIAZIDE. [Interacting]
     Active Substance: HYDROCHLOROTHIAZIDE
     Indication: DIURETIC THERAPY
  8. LEVOTHYROXINE. [Concomitant]
     Active Substance: LEVOTHYROXINE
     Indication: HYPOTHYROIDISM
     Dosage: 125 MICROGRAM, QD
  9. LEVOTHYROXINE. [Concomitant]
     Active Substance: LEVOTHYROXINE
     Dosage: UNK
  10. CALCITRIOL. [Interacting]
     Active Substance: CALCITRIOL
     Indication: TETANY
     Dosage: 0.5 UG, DAILY
     Route: 048
  11. HYDROCHLOROTHIAZIDE. [Interacting]
     Active Substance: HYDROCHLOROTHIAZIDE
     Indication: HYPOPARATHYROIDISM
  12. HYDROCHLOROTHIAZIDE. [Interacting]
     Active Substance: HYDROCHLOROTHIAZIDE
     Indication: CHRONIC KIDNEY DISEASE
  13. CALCIUM CARBONATE. [Interacting]
     Active Substance: CALCIUM CARBONATE
     Indication: HYPOPARATHYROIDISM
     Dosage: UNK
     Route: 042
  14. POTASSIUM CHLORIDE. [Concomitant]
     Active Substance: POTASSIUM CHLORIDE
     Indication: BLOOD POTASSIUM ABNORMAL
     Dosage: 1800 MILLIGRAM, QD
     Route: 048
  15. CALCITRIOL. [Interacting]
     Active Substance: CALCITRIOL
     Indication: HYPOPARATHYROIDISM
     Dosage: 0.5 MICROGRAM, QD
     Route: 048
  16. CALCITRIOL. [Interacting]
     Active Substance: CALCITRIOL
     Indication: HYPOCALCAEMIA
     Dosage: 1 MICROGRAM, QD
     Route: 048
  17. POTASSIUM CHLORIDE. [Concomitant]
     Active Substance: POTASSIUM CHLORIDE
     Indication: BLOOD POTASSIUM ABNORMAL
     Dosage: 1800 MG, UNK
     Route: 042
  18. CALCIUM CARBONATE. [Interacting]
     Active Substance: CALCIUM CARBONATE
     Indication: HYPOCALCAEMIA
     Dosage: 3000 MG, DAILY (HIGH DOSES)
  19. CALCITRIOL. [Interacting]
     Active Substance: CALCITRIOL
     Indication: CHRONIC KIDNEY DISEASE
     Dosage: 0.25 UG, DAILY
     Route: 048
  20. CALCITRIOL. [Interacting]
     Active Substance: CALCITRIOL
     Dosage: UNK
     Route: 048
  21. HYDROCHLOROTHIAZIDE. [Interacting]
     Active Substance: HYDROCHLOROTHIAZIDE
     Indication: HYPOCALCAEMIA
     Dosage: 50 MILLIGRAM, QD
     Route: 065
  22. WARFARIN [Concomitant]
     Active Substance: WARFARIN
     Indication: ANTICOAGULANT THERAPY
     Dosage: UNK
     Route: 048
  23. WARFARIN [Concomitant]
     Active Substance: WARFARIN
     Indication: PROPHYLAXIS
  24. POTASSIUM CHLORIDE. [Concomitant]
     Active Substance: POTASSIUM CHLORIDE
     Dosage: UNK
     Route: 042
  25. HYDROCHLOROTHIAZIDE. [Interacting]
     Active Substance: HYDROCHLOROTHIAZIDE
     Indication: TETANY
  26. POTASSIUM CHLORIDE. [Concomitant]
     Active Substance: POTASSIUM CHLORIDE
     Dosage: UNK
     Route: 048

REACTIONS (5)
  - Fall [Unknown]
  - Tetany [Unknown]
  - Blood potassium decreased [Recovered/Resolved]
  - Drug interaction [Recovered/Resolved]
  - Milk-alkali syndrome [Recovered/Resolved]
